FAERS Safety Report 9301285 (Version 4)
Quarter: 2014Q1

REPORT INFORMATION
  Report Type: Report from Study
  Country: NL (occurrence: NL)
  Receive Date: 20130521
  Receipt Date: 20140326
  Transmission Date: 20141002
  Serious: Yes (Hospitalization)
  Sender: FDA-Public Use
  Company Number: NL-ROCHE-1223800

PATIENT
  Age: 56 Year
  Sex: Female
  Weight: 68 kg

DRUGS (8)
  1. TRASTUZUMAB EMTANSINE [Suspect]
     Indication: BREAST CANCER
     Dosage: DOSE: 245 MG, DATE OF LAST DOSE PRIOR TO SAE: 17/APR/2013
     Route: 042
     Dates: start: 20130212
  2. PAROXETINE [Concomitant]
     Route: 065
     Dates: start: 2003
  3. OXAZEPAM [Concomitant]
     Route: 065
     Dates: start: 2012
  4. PANTOPRAZOLE [Concomitant]
     Route: 065
     Dates: start: 2012
  5. HYDROCHLOROTHIAZIDE [Concomitant]
     Route: 065
     Dates: start: 20130327, end: 20130508
  6. SYMBICORT [Concomitant]
     Route: 065
     Dates: start: 2003
  7. PARACETAMOL/CODEINE [Concomitant]
     Dosage: 500/20 MG
     Route: 065
     Dates: start: 2007
  8. SUPRADYN [Concomitant]
     Route: 065
     Dates: start: 20130417

REACTIONS (1)
  - Anxiety [Recovered/Resolved]
